FAERS Safety Report 7804828-7 (Version None)
Quarter: 2011Q4

REPORT INFORMATION
  Report Type: 
  Country: None (occurrence: None)
  Receive Date: 20111010
  Receipt Date: 20111004
  Transmission Date: 20120403
  Serious: Yes (Death, Hospitalization)
  Sender: FDA-Public Use
  Company Number: JP-JNJFOC-20110800082

PATIENT
  Sex: Female
  Weight: 46 kg

DRUGS (90)
  1. SOLDEM 1 [Concomitant]
     Route: 042
     Dates: start: 20100706, end: 20100708
  2. DEXAMETHASONE SODIUM PHOSPHATE [Concomitant]
     Route: 042
     Dates: start: 20100106, end: 20100106
  3. WARFARIN SODIUM [Concomitant]
     Indication: DEEP VEIN THROMBOSIS
     Route: 048
     Dates: start: 20091112
  4. TPN ELECTROLYTES IN PLASTIC CONTAINER [Concomitant]
     Route: 042
     Dates: start: 20100706, end: 20100728
  5. TPN ELECTROLYTES IN PLASTIC CONTAINER [Concomitant]
     Route: 042
     Dates: start: 20100529, end: 20100601
  6. CINAL [Concomitant]
     Route: 048
     Dates: start: 20091218
  7. EPHEDRA TEAS [Concomitant]
     Route: 048
     Dates: start: 20091218, end: 20100112
  8. SOLITA-T NO.4 [Concomitant]
     Route: 042
     Dates: start: 20100130, end: 20100212
  9. KENALOG [Concomitant]
     Route: 049
     Dates: start: 20100508, end: 20100508
  10. DOXORUBICIN HCL [Suspect]
     Route: 042
     Dates: start: 20100604, end: 20100604
  11. FENTANYL-100 [Concomitant]
     Route: 062
     Dates: end: 20100618
  12. NERIPROCT [Concomitant]
     Indication: HAEMORRHOIDS
     Route: 061
  13. ISOTONIC SODIUM CHLORIDE [Concomitant]
     Route: 042
     Dates: start: 20100106, end: 20100106
  14. DEXTROSE [Concomitant]
     Route: 042
     Dates: start: 20091110, end: 20091110
  15. PRIMPERAN TAB [Concomitant]
     Route: 042
     Dates: start: 20100129, end: 20100129
  16. MEROPENEM [Concomitant]
     Route: 042
     Dates: start: 20091117, end: 20091124
  17. SODIUM CHLORIDE INJ [Concomitant]
     Route: 042
     Dates: start: 20091117, end: 20091117
  18. PENTAZOCINE LACTATE [Concomitant]
     Route: 042
     Dates: start: 20100129, end: 20100129
  19. ISOTONIC SODIUM CHLORIDE [Concomitant]
     Route: 042
  20. DEXTROSE [Concomitant]
     Route: 042
     Dates: start: 20100106, end: 20100106
  21. DEXTROSE [Concomitant]
     Route: 042
     Dates: start: 20100507, end: 20100507
  22. KYTRIL [Concomitant]
     Route: 042
     Dates: start: 20100106, end: 20100106
  23. KAKKON-TO [Concomitant]
     Route: 048
     Dates: start: 20091116, end: 20091116
  24. DAI-KENCHU-TO [Concomitant]
     Route: 048
     Dates: end: 20100722
  25. SOLITA-T NO.4 [Concomitant]
     Route: 042
     Dates: start: 20100213, end: 20100215
  26. DOXORUBICIN HCL [Suspect]
     Route: 042
     Dates: start: 20100106, end: 20100106
  27. DOXORUBICIN HCL [Suspect]
     Route: 042
     Dates: start: 20091110, end: 20091110
  28. MAGMITT [Concomitant]
     Route: 048
     Dates: end: 20100116
  29. VITAMEDIN [Concomitant]
     Route: 042
     Dates: start: 20091116
  30. SOLDEM 1 [Concomitant]
     Route: 042
     Dates: start: 20100720, end: 20100725
  31. SOLDEM 1 [Concomitant]
     Route: 042
     Dates: start: 20100601, end: 20100603
  32. TPN ELECTROLYTES IN PLASTIC CONTAINER [Concomitant]
     Route: 042
     Dates: start: 20091116
  33. OXINORM [Concomitant]
     Route: 048
     Dates: start: 20091126, end: 20100606
  34. CEFMETAZON [Concomitant]
     Route: 042
     Dates: start: 20100530, end: 20100607
  35. MARZULENE-S [Concomitant]
     Route: 048
     Dates: start: 20100621, end: 20100627
  36. DOXORUBICIN HCL [Suspect]
     Route: 042
     Dates: start: 20100312, end: 20100312
  37. SENNOSIDE [Concomitant]
     Route: 048
     Dates: end: 20100616
  38. NOVO HEPARIN [Concomitant]
     Indication: DEEP VEIN THROMBOSIS
     Route: 042
  39. SOLDEM 1 [Concomitant]
     Route: 042
  40. SOLDEM 1 [Concomitant]
     Route: 042
     Dates: start: 20100130, end: 20100130
  41. ISOTONIC SODIUM CHLORIDE [Concomitant]
     Route: 042
     Dates: start: 20100106, end: 20100106
  42. DEXAMETHASONE SODIUM PHOSPHATE [Concomitant]
     Route: 042
     Dates: start: 20100507, end: 20100507
  43. ASPIRIN [Concomitant]
     Route: 048
     Dates: start: 20091210, end: 20100622
  44. PANTHENOL [Concomitant]
     Route: 042
     Dates: start: 20100129, end: 20100129
  45. FERROUS CITRATE [Concomitant]
     Route: 048
     Dates: start: 20100106, end: 20100116
  46. SENNOSIDE [Concomitant]
     Route: 048
     Dates: end: 20100722
  47. HERBAL NERVE TONIC LIQUID [Concomitant]
     Route: 048
  48. KALIMATE [Concomitant]
     Route: 048
     Dates: start: 20091126
  49. CINAL [Concomitant]
     Route: 048
     Dates: end: 20100116
  50. ASPIRIN [Concomitant]
     Indication: DEEP VEIN THROMBOSIS
     Route: 048
     Dates: end: 20100722
  51. RINDERON-VG [Concomitant]
     Route: 061
     Dates: start: 20100106, end: 20100106
  52. ATARAX [Concomitant]
     Route: 042
     Dates: start: 20100129, end: 20100129
  53. PANTHENOL [Concomitant]
     Route: 042
     Dates: end: 20100714
  54. TPN [Concomitant]
     Route: 048
     Dates: start: 20100528, end: 20100704
  55. CEFMETAZON [Concomitant]
     Route: 042
     Dates: end: 20100706
  56. DOXORUBICIN HCL [Suspect]
     Route: 042
     Dates: start: 20100212, end: 20100212
  57. DOXORUBICIN HCL [Suspect]
     Route: 042
     Dates: start: 20100409, end: 20100409
  58. FENTANYL-100 [Concomitant]
     Route: 062
     Dates: start: 20100703, end: 20100729
  59. MAGMITT [Concomitant]
     Indication: CONSTIPATION
     Route: 048
     Dates: end: 20100621
  60. ARGAMATE [Concomitant]
     Indication: HYDRONEPHROSIS
     Route: 048
  61. DEXAMETHASONE SODIUM PHOSPHATE [Concomitant]
     Route: 042
     Dates: start: 20091111, end: 20091111
  62. KYTRIL [Concomitant]
     Route: 042
  63. MAC-AMIN [Concomitant]
     Route: 042
     Dates: start: 20091116
  64. TPN ELECTROLYTES IN PLASTIC CONTAINER [Concomitant]
     Route: 042
     Dates: end: 20100714
  65. TPN ELECTROLYTES IN PLASTIC CONTAINER [Concomitant]
     Route: 042
     Dates: start: 20100602, end: 20100602
  66. FUNGIZONE [Concomitant]
     Route: 042
     Dates: start: 20091116, end: 20091119
  67. CEFAZOLIN SODIUM [Concomitant]
     Indication: CONSTIPATION
     Route: 048
     Dates: start: 20091117, end: 20091120
  68. SODIUM BICARBONATE [Concomitant]
     Route: 049
     Dates: start: 20091123, end: 20100507
  69. ASPIRIN [Concomitant]
     Route: 048
     Dates: start: 20100106, end: 20100116
  70. ZOLPIDEM [Concomitant]
     Route: 048
     Dates: start: 20100507, end: 20100605
  71. DOXORUBICIN HCL [Suspect]
     Indication: OVARIAN CANCER RECURRENT
     Route: 042
     Dates: start: 20100507, end: 20100507
  72. DOXORUBICIN HCL [Suspect]
     Route: 042
     Dates: start: 20091209, end: 20091209
  73. PHYSIOSOL [Concomitant]
     Route: 042
     Dates: start: 20091116
  74. SENNOSIDE [Concomitant]
     Indication: CONSTIPATION
     Route: 048
     Dates: start: 20091027, end: 20100116
  75. MAGMITT [Concomitant]
     Route: 048
  76. SOLDEM 1 [Concomitant]
     Route: 042
     Dates: start: 20100129, end: 20100129
  77. ISOTONIC SODIUM CHLORIDE [Concomitant]
     Route: 042
     Dates: start: 20100507, end: 20100507
  78. ISOTONIC SODIUM CHLORIDE [Concomitant]
     Route: 042
     Dates: start: 20100507, end: 20100507
  79. ISOTONIC SODIUM CHLORIDE [Concomitant]
     Route: 042
     Dates: end: 20100706
  80. DEXAMETHASONE SODIUM PHOSPHATE [Concomitant]
     Route: 042
     Dates: start: 20091110, end: 20091110
  81. KYTRIL [Concomitant]
     Route: 042
     Dates: start: 20100507, end: 20100507
  82. PRIMPERAN TAB [Concomitant]
     Route: 042
     Dates: start: 20091116
  83. MEROPENEM [Concomitant]
     Route: 042
     Dates: start: 20091116, end: 20091116
  84. HERBAL PREPARATION [Concomitant]
     Route: 048
     Dates: start: 20091117, end: 20091118
  85. NAPROXEN [Concomitant]
     Route: 048
     Dates: start: 20091122, end: 20100116
  86. DAI-KENCHU-TO [Concomitant]
     Indication: CONSTIPATION
     Route: 048
     Dates: start: 20091210, end: 20100116
  87. LECICARBON [Concomitant]
     Indication: CONSTIPATION
     Route: 054
     Dates: start: 20100106, end: 20100116
  88. SOLITA-T NO.4 [Concomitant]
     Route: 042
     Dates: start: 20100129, end: 20100129
  89. AZUNOL ST [Concomitant]
     Route: 048
     Dates: start: 20100507, end: 20100610
  90. POTASSIUM CHLORIDE [Concomitant]
     Route: 042
     Dates: start: 20100529, end: 20100601

REACTIONS (6)
  - FEMALE GENITAL TRACT FISTULA [None]
  - URINARY TRACT INFECTION [None]
  - SEPSIS [None]
  - ANAEMIA [None]
  - OVARIAN CANCER RECURRENT [None]
  - INTESTINAL OBSTRUCTION [None]
